FAERS Safety Report 24668936 (Version 1)
Quarter: 2024Q4

REPORT INFORMATION
  Report Type: Spontaneous
  Country: US (occurrence: US)
  Receive Date: 20241127
  Receipt Date: 20241127
  Transmission Date: 20250114
  Serious: No
  Sender: GLAXOSMITHKLINE
  Company Number: US-GSKCCFUS-Case-02155131_AE-118793

PATIENT
  Sex: Male

DRUGS (1)
  1. VENTOLIN [Suspect]
     Active Substance: ALBUTEROL SULFATE
     Indication: Product used for unknown indication
     Dosage: 18 G (18G EVERY 4 HOURS PRN)
     Route: 055

REACTIONS (3)
  - Dry throat [Recovered/Resolved]
  - Drug ineffective [Unknown]
  - Product complaint [Unknown]
